FAERS Safety Report 7068934-X (Version None)
Quarter: 2010Q4

REPORT INFORMATION
  Report Type: 
  Country: None (occurrence: None)
  Receive Date: 20101028
  Receipt Date: 20101019
  Transmission Date: 20110411
  Serious: Yes (Other)
  Sender: FDA-Public Use
  Company Number: PHHY2010NL59702

PATIENT
  Sex: Male

DRUGS (4)
  1. ZOMETA [Suspect]
     Dosage: 4 MG, UNK
     Dates: start: 20100819
  2. ZOMETA [Suspect]
     Dosage: 4 MG, UNK
     Dates: start: 20100908
  3. ZOMETA [Suspect]
     Dosage: UNK
     Dates: start: 20100928
  4. CHEMOTHERAPEUTICS [Concomitant]

REACTIONS (8)
  - BONE PAIN [None]
  - CHILLS [None]
  - FEELING COLD [None]
  - HEPATIC FUNCTION ABNORMAL [None]
  - INFLUENZA LIKE ILLNESS [None]
  - LIVER FUNCTION TEST ABNORMAL [None]
  - MALAISE [None]
  - MUSCULOSKELETAL CHEST PAIN [None]
